FAERS Safety Report 25289488 (Version 1)
Quarter: 2025Q2

REPORT INFORMATION
  Report Type: Spontaneous
  Country: MY (occurrence: MY)
  Receive Date: 20250509
  Receipt Date: 20250509
  Transmission Date: 20250716
  Serious: Yes (Other)
  Sender: ORGANON
  Company Number: MY-ORGANON-O2505MYS000346

PATIENT
  Age: 28 Year
  Sex: Female

DRUGS (1)
  1. ETONOGESTREL [Suspect]
     Active Substance: ETONOGESTREL
     Indication: Contraception
     Route: 059

REACTIONS (7)
  - Neuropathy peripheral [Recovering/Resolving]
  - General anaesthesia [Unknown]
  - Ulnar nerve injury [Recovering/Resolving]
  - Post procedural complication [Recovering/Resolving]
  - Complication associated with device [Recovered/Resolved]
  - Complication of device removal [Recovered/Resolved]
  - Complication of device removal [Recovered/Resolved]
